FAERS Safety Report 14020258 (Version 5)
Quarter: 2017Q4

REPORT INFORMATION
  Report Type: Report from Study
  Country: ES (occurrence: ES)
  Receive Date: 20170928
  Receipt Date: 20171218
  Transmission Date: 20180321
  Serious: Yes (Life-Threatening, Hospitalization)
  Sender: FDA-Public Use
  Company Number: ES-ROCHE-1997331

PATIENT
  Age: 64 Year
  Sex: Male
  Weight: 76 kg

DRUGS (27)
  1. ATEZOLIZUMAB. [Suspect]
     Active Substance: ATEZOLIZUMAB
     Dosage: RE-STARTED AFTER TEMPORARILY INTERRUPTED, AS MONOTHERAPY
     Route: 042
     Dates: start: 20171108
  2. NOREPINEPHRINE. [Concomitant]
     Active Substance: NOREPINEPHRINE
     Route: 065
     Dates: start: 20170921, end: 20170925
  3. ONDANSETRON [Concomitant]
     Active Substance: ONDANSETRON
     Route: 065
     Dates: start: 20170927
  4. RANITIDINE. [Concomitant]
     Active Substance: RANITIDINE
     Route: 065
     Dates: start: 20170928
  5. IPRATROPIO BROMURO [Concomitant]
     Active Substance: IPRATROPIUM BROMIDE
     Route: 065
     Dates: start: 20170921, end: 20170922
  6. AMIODARONA [Concomitant]
     Active Substance: AMIODARONE
     Route: 065
     Dates: start: 20170922, end: 20170923
  7. RO 6958688 (T-CELL BISPECIFIC MONOCLONAL ANTIBODY) [Suspect]
     Active Substance: INVESTIGATIONAL PRODUCT
     Indication: NEOPLASM MALIGNANT
     Dosage: DATE OF LAST DOSE PRIOR TO SAE: 20/SEP/2017.?TEMPORARILY INTERRUPTED ON 20/SEP/2017 FOR CARDIAC ARRE
     Route: 042
     Dates: start: 20170920, end: 20170920
  8. VANCOMICINA [Concomitant]
     Active Substance: VANCOMYCIN
     Route: 065
     Dates: start: 20170921, end: 20170921
  9. FENTANILO [Concomitant]
     Active Substance: FENTANYL
     Route: 065
     Dates: start: 20170921, end: 20170921
  10. VANCOMICINA [Concomitant]
     Active Substance: VANCOMYCIN
     Route: 065
     Dates: start: 20170921, end: 20170921
  11. VANCOMICINA [Concomitant]
     Active Substance: VANCOMYCIN
     Route: 065
     Dates: start: 20170921, end: 20170921
  12. FLUCONAZOL [Concomitant]
     Active Substance: FLUCONAZOLE
     Route: 065
     Dates: start: 20170921
  13. INSULIN [Concomitant]
     Active Substance: INSULIN NOS
     Route: 065
     Dates: start: 20170929, end: 20170929
  14. PANTOPRAZOL [Concomitant]
     Active Substance: PANTOPRAZOLE SODIUM
     Route: 065
     Dates: start: 20170920
  15. VANCOMICINA [Concomitant]
     Active Substance: VANCOMYCIN
     Route: 065
     Dates: start: 20170921, end: 20170926
  16. VANCOMICINA [Concomitant]
     Active Substance: VANCOMYCIN
     Route: 065
     Dates: start: 20170926, end: 20170927
  17. PARACETAMOL [Concomitant]
     Active Substance: ACETAMINOPHEN
     Route: 065
     Dates: start: 20170923, end: 20170928
  18. FLUCONAZOL [Concomitant]
     Active Substance: FLUCONAZOLE
     Route: 065
     Dates: start: 20170921, end: 20170921
  19. NISTATIN [Concomitant]
     Active Substance: NYSTATIN
     Route: 065
     Dates: start: 20170926, end: 20171002
  20. INSULIN [Concomitant]
     Active Substance: INSULIN NOS
     Route: 065
     Dates: start: 20170927, end: 20170929
  21. GABAPENTINA [Concomitant]
     Active Substance: GABAPENTIN
  22. METAMIZOL [Concomitant]
     Active Substance: METAMIZOLE SODIUM
  23. BEMIPARIN [Concomitant]
     Route: 065
     Dates: start: 20170924
  24. ATEZOLIZUMAB. [Suspect]
     Active Substance: ATEZOLIZUMAB
     Indication: NEOPLASM MALIGNANT
     Dosage: DATE OF LAST DOSE PRIOR TO SAE: 20/SEP/2017.?FIXED DOSE?TEMPORARILY INTERRUPTED ON 20/SEP/2017 FOR C
     Route: 042
     Dates: start: 20170920, end: 20170920
  25. MIRTAZAPINA [Concomitant]
     Active Substance: MIRTAZAPINE
     Route: 065
     Dates: start: 20170927
  26. TRIMETHOPRIM SULFA [Concomitant]
     Active Substance: TRIMETHOPRIM SULFATE
     Route: 065
     Dates: start: 20170926, end: 20171002
  27. MEROPENEM. [Concomitant]
     Active Substance: MEROPENEM
     Route: 065
     Dates: start: 20170921, end: 20170926

REACTIONS (3)
  - Hypoxia [Recovered/Resolved]
  - Hypotension [Recovering/Resolving]
  - Cardiac arrest [Recovered/Resolved]

NARRATIVE: CASE EVENT DATE: 20170920
